FAERS Safety Report 6615625-2 (Version None)
Quarter: 2010Q1

REPORT INFORMATION
  Report Type: 
  Country: None (occurrence: None)
  Receive Date: 20100305
  Receipt Date: 20100223
  Transmission Date: 20100710
  Serious: Yes (Other)
  Sender: FDA-Public Use
  Company Number: CA-BAYER-201015099NA

PATIENT
  Age: 63 Year
  Sex: Female

DRUGS (1)
  1. CAMPATH [Suspect]
     Indication: T-CELL PROLYMPHOCYTIC LEUKAEMIA
     Dosage: APPROXIMATE START DATE MARCH, APRIL OR MAY 2007
     Dates: start: 20070101

REACTIONS (1)
  - T-CELL PROLYMPHOCYTIC LEUKAEMIA [None]
